FAERS Safety Report 8658598 (Version 2)
Quarter: 2013Q2

REPORT INFORMATION
  Report Type: Report from Study
  Country: MX (occurrence: MX)
  Receive Date: 20120710
  Receipt Date: 20130506
  Transmission Date: 20140414
  Serious: Yes (Death)
  Sender: FDA-Public Use
  Company Number: PHHY2012MX058584

PATIENT
  Age: 61 Year
  Sex: Female

DRUGS (1)
  1. ONBREZ [Suspect]
     Indication: CHRONIC OBSTRUCTIVE PULMONARY DISEASE
     Dosage: 300 UG, QD
     Dates: start: 201205

REACTIONS (6)
  - Respiratory arrest [Fatal]
  - Decreased appetite [Unknown]
  - Weight decreased [Unknown]
  - Thirst decreased [Unknown]
  - Eating disorder [Unknown]
  - Condition aggravated [Unknown]
